FAERS Safety Report 8208642-2 (Version None)
Quarter: 2012Q1

REPORT INFORMATION
  Report Type: 
  Country: None (occurrence: None)
  Receive Date: 20120314
  Receipt Date: 20120308
  Transmission Date: 20120608
  Serious: Yes (Other)
  Sender: FDA-Public Use
  Company Number: ZA-ROCHE-1047159

PATIENT

DRUGS (1)
  1. MABTHERA [Suspect]
     Indication: SYSTEMIC LUPUS ERYTHEMATOSUS

REACTIONS (4)
  - RASH [None]
  - UNEVALUABLE EVENT [None]
  - TOXIC EPIDERMAL NECROLYSIS [None]
  - MYELODYSPLASTIC SYNDROME [None]
